FAERS Safety Report 24986285 (Version 1)
Quarter: 2025Q1

REPORT INFORMATION
  Report Type: Spontaneous
  Country: CN (occurrence: CN)
  Receive Date: 20250219
  Receipt Date: 20250219
  Transmission Date: 20250408
  Serious: Yes (Hospitalization)
  Sender: MERCK SHARP & DOHME LLC
  Company Number: CN-009507513-2254451

PATIENT
  Age: 65 Year
  Sex: Female
  Weight: 58 kg

DRUGS (3)
  1. STEGLATRO [Suspect]
     Active Substance: ERTUGLIFLOZIN PIDOLATE
     Indication: Blood glucose abnormal
     Dosage: 5MG QD ORAL
     Route: 048
     Dates: start: 20241206, end: 20250107
  2. DORZAGLIATIN [Concomitant]
     Active Substance: DORZAGLIATIN
     Indication: Blood glucose abnormal
     Dosage: 75MG, BID, ORAL
     Route: 048
     Dates: start: 20241203, end: 20250107
  3. GLUCOBAY [Concomitant]
     Active Substance: ACARBOSE
     Indication: Blood glucose abnormal
     Route: 048
     Dates: start: 20241203, end: 20250107

REACTIONS (2)
  - Urinary tract infection [Recovering/Resolving]
  - Diabetes mellitus inadequate control [Unknown]

NARRATIVE: CASE EVENT DATE: 20250101
